FAERS Safety Report 8262249-X (Version None)
Quarter: 2012Q2

REPORT INFORMATION
  Report Type: 
  Country: None (occurrence: None)
  Receive Date: 20120405
  Receipt Date: 20120330
  Transmission Date: 20120825
  Serious: Yes (Hospitalization, Other)
  Sender: FDA-Public Use
  Company Number: CA-SANOFI-AVENTIS-2012SA015129

PATIENT
  Age: 62 Year
  Sex: Female

DRUGS (12)
  1. ANGIOTENSIN II ANTAGONISTS [Concomitant]
  2. ASPIRIN [Suspect]
     Route: 065
  3. PANTOPRAZOLE [Concomitant]
     Dates: start: 20111225, end: 20111227
  4. LANSOPRAZOLE [Concomitant]
     Dates: start: 20111226
  5. ALL OTHER THERAPEUTIC PRODUCTS [Concomitant]
  6. METFORMIN HCL [Concomitant]
  7. LANTUS [Concomitant]
  8. HEPARIN [Concomitant]
     Dosage: DOSE:5000 UNIT(S)
     Dates: start: 20101213, end: 20101213
  9. NOVORAPID [Concomitant]
  10. AMOXICILLIN AND CLAVULANATE POTASSIUM [Concomitant]
     Dates: start: 20111228, end: 20120107
  11. PLAVIX [Suspect]
     Route: 065
  12. PIPERACILLIN AND TAZOBACTAM [Concomitant]
     Dates: start: 20111226, end: 20111228

REACTIONS (6)
  - UPPER GASTROINTESTINAL HAEMORRHAGE [None]
  - HAEMOGLOBIN DECREASED [None]
  - HAEMATEMESIS [None]
  - HEPATIC NEOPLASM [None]
  - MELAENA [None]
  - PYREXIA [None]
